FAERS Safety Report 7531040-1 (Version None)
Quarter: 2011Q2

REPORT INFORMATION
  Report Type: 
  Country: None (occurrence: None)
  Receive Date: 20110531
  Receipt Date: 20110516
  Transmission Date: 20111010
  Serious: Yes (Other)
  Sender: FDA-Public Use
  Company Number: 2011MA005958

PATIENT
  Age: 20 Year
  Sex: Male

DRUGS (1)
  1. PROPRANOLOL HCL [Suspect]
     Indication: HAEMANGIOMA OF SKIN
     Dosage: 2 MG;TID;PO
     Route: 048

REACTIONS (4)
  - IRRITABILITY [None]
  - BLOOD GLUCOSE DECREASED [None]
  - CONVULSION [None]
  - BLOOD KETONE BODY INCREASED [None]
